FAERS Safety Report 4444475-0 (Version None)
Quarter: 2004Q3

REPORT INFORMATION
  Report Type: 
  Country: None (occurrence: None)
  Receive Date: 20040902
  Receipt Date: 20040813
  Transmission Date: 20050211
  Serious: Yes (Other)
  Sender: FDA-Public Use
  Company Number: USA040259514

PATIENT
  Age: 71 Year
  Sex: Female
  Weight: 57 kg

DRUGS (9)
  1. FORTEO [Suspect]
     Indication: BONE SCAN
     Dosage: 20 UG/1 DAY
     Dates: start: 20040210, end: 20040401
  2. CARDURA [Concomitant]
  3. CARDIZEM [Concomitant]
  4. NEURONTIN [Concomitant]
  5. ZYRTEC [Concomitant]
  6. FOSAMAX [Concomitant]
  7. ASPIRIN [Concomitant]
  8. LANOXIN [Concomitant]
  9. CELEBREX [Concomitant]

REACTIONS (5)
  - AURA [None]
  - BLOOD PRESSURE DECREASED [None]
  - CONVULSION [None]
  - INJECTION SITE HAEMORRHAGE [None]
  - PHARMACEUTICAL PRODUCT COMPLAINT [None]
